FAERS Safety Report 8382720-X (Version None)
Quarter: 2012Q2

REPORT INFORMATION
  Report Type: 
  Country: None (occurrence: None)
  Receive Date: 20120524
  Receipt Date: 20120412
  Transmission Date: 20120825
  Serious: No
  Sender: FDA-Public Use
  Company Number: US-ALLERGAN-1205271US

PATIENT
  Age: 71 Year
  Sex: Female

DRUGS (2)
  1. LASTACAFT [Suspect]
     Indication: SEASONAL ALLERGY
     Route: 047
  2. REFRESH PLUS [Concomitant]
     Indication: DRY EYE
     Dosage: UNK
     Route: 047

REACTIONS (2)
  - EYELID PTOSIS [None]
  - THERAPEUTIC RESPONSE UNEXPECTED [None]
